FAERS Safety Report 4352469-9 (Version None)
Quarter: 2004Q2

REPORT INFORMATION
  Report Type: 
  Country: None (occurrence: None)
  Receive Date: 20040409
  Receipt Date: 20040204
  Transmission Date: 20050107
  Serious: No
  Sender: FDA-Public Use
  Company Number: PHEH2004US01580

PATIENT
  Age: 76 Year
  Sex: Male

DRUGS (1)
  1. ELIDEL [Suspect]
     Indication: SKIN DISORDER
     Dosage: TOPICAL
     Route: 061
     Dates: start: 20040105, end: 20040126

REACTIONS (3)
  - APPLICATION SITE BURNING [None]
  - SCAB [None]
  - SKIN DISORDER [None]
